FAERS Safety Report 7586984-1 (Version None)
Quarter: 2011Q3

REPORT INFORMATION
  Report Type: 
  Country: None (occurrence: None)
  Receive Date: 20110701
  Receipt Date: 20110617
  Transmission Date: 20111222
  Serious: Yes (Hospitalization)
  Sender: FDA-Public Use
  Company Number: PHHY2011TW45514

PATIENT
  Sex: Female
  Weight: 44 kg

DRUGS (2)
  1. EXJADE [Suspect]
     Indication: THALASSAEMIA BETA
     Dosage: 2000 MG
     Route: 048
     Dates: start: 20090715
  2. EXJADE [Suspect]
     Dosage: 2000 MG/DAY
     Route: 048
     Dates: start: 20110526, end: 20110531

REACTIONS (8)
  - MUCOUS STOOLS [None]
  - ENTEROCOLITIS [None]
  - RENAL FAILURE [None]
  - DIARRHOEA [None]
  - ABDOMINAL DISCOMFORT [None]
  - FREQUENT BOWEL MOVEMENTS [None]
  - DEHYDRATION [None]
  - ABDOMINAL PAIN [None]
